FAERS Safety Report 6174817-X (Version None)
Quarter: 2009Q2

REPORT INFORMATION
  Report Type: 
  Country: None (occurrence: None)
  Receive Date: 20090430
  Receipt Date: 20090105
  Transmission Date: 20091009
  Serious: Yes (Other)
  Sender: FDA-Public Use
  Company Number: US-ASTRAZENECA-2008UW25887

PATIENT
  Age: 56 Year
  Sex: Female
  Weight: 70.8 kg

DRUGS (9)
  1. NEXIUM [Suspect]
     Indication: EROSIVE OESOPHAGITIS
     Route: 048
     Dates: start: 20080919, end: 20081015
  2. NEXIUM [Suspect]
     Indication: GASTROOESOPHAGEAL REFLUX DISEASE
     Route: 048
     Dates: start: 20080919, end: 20081015
  3. FOSAMAX [Concomitant]
  4. DOXEPIN HCL [Concomitant]
  5. EFFEXOR [Concomitant]
  6. ASPIRIN [Concomitant]
  7. CALCIUM [Concomitant]
  8. ACIPHEX [Concomitant]
  9. LAXATIVE [Concomitant]

REACTIONS (1)
  - RASH [None]
